FAERS Safety Report 23954705 (Version 3)
Quarter: 2024Q3

REPORT INFORMATION
  Report Type: Spontaneous
  Country: BE (occurrence: BE)
  Receive Date: 20240610
  Receipt Date: 20240711
  Transmission Date: 20241016
  Serious: Yes (Hospitalization, Other)
  Sender: ROCHE
  Company Number: BE-SANDOZ-SDZ2024BE051885

PATIENT
  Age: 47 Year
  Sex: Female
  Weight: 83 kg

DRUGS (16)
  1. ALTEPLASE [Suspect]
     Active Substance: ALTEPLASE
     Indication: Menometrorrhagia
     Route: 065
  2. XARELTO [Suspect]
     Active Substance: RIVAROXABAN
     Indication: Deep vein thrombosis
     Route: 065
  3. XARELTO [Suspect]
     Active Substance: RIVAROXABAN
     Indication: Pulmonary embolism
     Route: 065
  4. ENOXAPARIN [Suspect]
     Active Substance: ENOXAPARIN
     Indication: Prophylaxis
     Route: 065
  5. ENOXAPARIN [Suspect]
     Active Substance: ENOXAPARIN
     Route: 065
  6. SODIUM CHLORIDE [Concomitant]
     Active Substance: SODIUM CHLORIDE
  7. ETHINYL ESTRADIOL\LEVONORGESTREL [Concomitant]
     Active Substance: ETHINYL ESTRADIOL\LEVONORGESTREL
     Indication: Menometrorrhagia
  8. BECLOMETHASONE [Concomitant]
     Active Substance: BECLOMETHASONE
  9. DESLORATADINE [Concomitant]
     Active Substance: DESLORATADINE
  10. NOMEGESTROL [Concomitant]
     Active Substance: NOMEGESTROL
  11. FORMOTEROL [Concomitant]
     Active Substance: FORMOTEROL
  12. LYNESTRENOL [Concomitant]
     Active Substance: LYNESTRENOL
  13. PROGESTERONE [Concomitant]
     Active Substance: PROGESTERONE
  14. IRON DEXTRAN [Concomitant]
     Active Substance: IRON DEXTRAN
  15. OXYGEN [Concomitant]
     Active Substance: OXYGEN
  16. LEVONORGESTREL AND ETHINYL ESTRADIOL [Concomitant]
     Active Substance: ETHINYL ESTRADIOL\LEVONORGESTREL

REACTIONS (8)
  - Embolism venous [Recovering/Resolving]
  - Presyncope [Unknown]
  - Blood loss anaemia [Unknown]
  - Pulmonary embolism [Recovering/Resolving]
  - Pulmonary hypertension [Recovering/Resolving]
  - Drug withdrawal syndrome [Unknown]
  - Vaginal haemorrhage [Unknown]
  - Deep vein thrombosis [Recovering/Resolving]
